FAERS Safety Report 8417376-0 (Version None)
Quarter: 2012Q2

REPORT INFORMATION
  Report Type: 
  Country: None (occurrence: None)
  Receive Date: 20120606
  Receipt Date: 20120524
  Transmission Date: 20120825
  Serious: Yes (Other)
  Sender: FDA-Public Use
  Company Number: IT-CELGENEUS-083-20785-12052994

PATIENT
  Sex: Female

DRUGS (8)
  1. ALLOPURINOL [Concomitant]
     Route: 048
  2. DIFLUCAN [Concomitant]
     Route: 048
  3. THALIDOMIDE [Suspect]
     Indication: MULTIPLE MYELOMA
     Dosage: 50 MILLIGRAM
     Route: 048
     Dates: start: 20120508, end: 20120517
  4. VELCADE [Suspect]
     Indication: MULTIPLE MYELOMA
     Route: 041
     Dates: start: 20120508, end: 20120516
  5. DEXAMETHASONE [Concomitant]
     Route: 041
     Dates: start: 20120508, end: 20120516
  6. ACICLIN [Concomitant]
     Route: 048
  7. RAMIPRIL [Concomitant]
     Route: 065
  8. PANTOPRAZOLE SODIUM [Concomitant]
     Route: 048

REACTIONS (2)
  - ALANINE AMINOTRANSFERASE INCREASED [None]
  - ASPARTATE AMINOTRANSFERASE INCREASED [None]
